FAERS Safety Report 4685559-1 (Version None)
Quarter: 2005Q2

REPORT INFORMATION
  Report Type: 
  Country: None (occurrence: None)
  Receive Date: 20050601
  Receipt Date: 20050520
  Transmission Date: 20051028
  Serious: Yes (Death)
  Sender: FDA-Public Use
  Company Number: 2005-128438-NL

PATIENT
  Age: 59 Year
  Sex: Male
  Weight: 68.2 kg

DRUGS (10)
  1. TICE BCG [Suspect]
     Indication: BLADDER CANCER
     Dosage: CFU INTRAVESICAL
     Route: 043
     Dates: start: 20040416
  2. PROGRAF [Concomitant]
  3. CELLCEPT [Concomitant]
  4. PREDNISONE TAB [Concomitant]
  5. LANTUS [Concomitant]
  6. PROTONIX [Concomitant]
  7. LASIX [Concomitant]
  8. LOVASTATIN [Concomitant]
  9. NIFEDIPINE [Concomitant]
  10. ATENOLOL [Concomitant]

REACTIONS (6)
  - CARDIO-RESPIRATORY ARREST [None]
  - FATIGUE [None]
  - INFLUENZA LIKE ILLNESS [None]
  - NAUSEA [None]
  - SEPSIS [None]
  - VOMITING [None]
